FAERS Safety Report 16071994 (Version 1)
Quarter: 2019Q1

REPORT INFORMATION
  Report Type: Spontaneous
  Country: US (occurrence: US)
  Receive Date: 20190314
  Receipt Date: 20190314
  Transmission Date: 20190418
  Serious: Yes (Death, Hospitalization)
  Sender: FDA-Public Use
  Company Number: US-JNJFOC-20190313292

PATIENT
  Sex: Female

DRUGS (1)
  1. XARELTO [Suspect]
     Active Substance: RIVAROXABAN
     Indication: CARDIAC DISORDER
     Route: 048

REACTIONS (6)
  - Surgery [Unknown]
  - Bladder disorder [Unknown]
  - Internal haemorrhage [Fatal]
  - Malaise [Unknown]
  - Intestinal resection [Unknown]
  - Post procedural haemorrhage [Unknown]
